FAERS Safety Report 11788993 (Version 4)
Quarter: 2016Q4

REPORT INFORMATION
  Report Type: Spontaneous
  Country: JP (occurrence: JP)
  Receive Date: 20151201
  Receipt Date: 20161026
  Transmission Date: 20170206
  Serious: Yes (Death, Hospitalization, Disabling, Other)
  Sender: FDA-Public Use
  Company Number: PHJP2015JP018530

PATIENT
  Age: 68 Year
  Sex: Female
  Weight: 43.1 kg

DRUGS (18)
  1. NEXIUM 1-2-3 [Concomitant]
     Active Substance: AMOXICILLIN\CLARITHROMYCIN\ESOMEPRAZOLE
     Indication: GASTRITIS
     Dosage: 20 MG, QD
     Route: 048
     Dates: start: 20150724, end: 20151104
  2. HALAVEN [Concomitant]
     Active Substance: ERIBULIN MESYLATE
     Indication: BREAST CANCER
     Dosage: UNK
     Route: 065
     Dates: start: 20150430
  3. EXEMESTANE. [Concomitant]
     Active Substance: EXEMESTANE
     Indication: BREAST CANCER
     Dosage: 25 MG, QD
     Route: 048
     Dates: start: 20150724, end: 20151104
  4. DENOTAS [Concomitant]
     Active Substance: CALCIUM CARBONATE\CHOLECALCIFEROL\MAGNESIUM CARBONATE
     Indication: PRODUCT USED FOR UNKNOWN INDICATION
     Dosage: 2 DF, QD
     Route: 048
     Dates: start: 20150915, end: 20151104
  5. LASIX [Concomitant]
     Active Substance: FUROSEMIDE
     Indication: RESIDUAL URINE VOLUME
  6. OXYCONTIN [Concomitant]
     Active Substance: OXYCODONE HYDROCHLORIDE
     Indication: PAIN
     Dosage: 10 MG, BID
     Route: 048
     Dates: start: 20150724, end: 20150930
  7. ZOMETA [Concomitant]
     Active Substance: ZOLEDRONIC ACID
     Indication: PRODUCT USED FOR UNKNOWN INDICATION
     Dosage: UNK
     Route: 041
     Dates: end: 20150907
  8. FASLODEX [Concomitant]
     Active Substance: FULVESTRANT
     Indication: PRODUCT USED FOR UNKNOWN INDICATION
     Dosage: UNK
     Route: 065
     Dates: start: 20140121, end: 20140415
  9. FASLODEX [Concomitant]
     Active Substance: FULVESTRANT
     Dosage: UNK
     Route: 065
     Dates: start: 20150217, end: 201504
  10. AVASTIN [Concomitant]
     Active Substance: BEVACIZUMAB
     Indication: METASTASES TO BONE
     Dosage: UNK
     Route: 065
  11. DENOTAS [Concomitant]
     Active Substance: CALCIUM CARBONATE\CHOLECALCIFEROL\MAGNESIUM CARBONATE
     Indication: HYPOCALCAEMIA
  12. RANMARK [Concomitant]
     Active Substance: DENOSUMAB
     Indication: HYPERCALCAEMIA
     Dosage: 120 MG, 4W
     Route: 058
     Dates: start: 20150907, end: 20151104
  13. PACLITAXEL. [Concomitant]
     Active Substance: PACLITAXEL
     Indication: METASTASES TO LIVER
     Dosage: UNK
     Route: 065
  14. PREDONINE [Suspect]
     Active Substance: PREDNISOLONE\PREDNISOLONE ACETATE\PREDNISOLONE SODIUM SUCCINATE
     Indication: PAIN
     Dosage: 5 MG, QD
     Route: 048
     Dates: start: 20150724, end: 20151104
  15. LASIX [Concomitant]
     Active Substance: FUROSEMIDE
     Indication: HYPERCALCAEMIA
     Dosage: 20 MG, BID
     Route: 048
     Dates: start: 20150724, end: 20150915
  16. LASIX [Concomitant]
     Active Substance: FUROSEMIDE
     Indication: HYPERCALCAEMIA
     Dosage: 20 MG, QD
     Route: 042
     Dates: start: 20150724, end: 20150915
  17. MUCOSTA [Concomitant]
     Active Substance: REBAMIPIDE
     Indication: GASTRITIS
     Dosage: 100 MG, TID
     Route: 048
     Dates: start: 20150724, end: 20151104
  18. AFINITOR [Suspect]
     Active Substance: EVEROLIMUS
     Indication: BREAST CANCER
     Dosage: 5 MG, BID
     Route: 048
     Dates: start: 20150724, end: 20150925

REACTIONS (17)
  - Nasal crusting [Recovering/Resolving]
  - Paraesthesia [Unknown]
  - Nasal necrosis [Not Recovered/Not Resolved]
  - Malignant neoplasm progression [Not Recovered/Not Resolved]
  - Hypophagia [Unknown]
  - Trigeminal nerve disorder [Not Recovered/Not Resolved]
  - Herpes zoster [Unknown]
  - Nausea [Recovering/Resolving]
  - Fall [Unknown]
  - Stomatitis [Not Recovered/Not Resolved]
  - Pain [Unknown]
  - Hypocalcaemia [Unknown]
  - Rash [Recovering/Resolving]
  - Breast cancer [Fatal]
  - Pubis fracture [Unknown]
  - Eczema [Unknown]
  - Skin discolouration [Recovering/Resolving]

NARRATIVE: CASE EVENT DATE: 20150811
